FAERS Safety Report 9106707 (Version 1)
Quarter: 2013Q1

REPORT INFORMATION
  Report Type: Spontaneous
  Country: US (occurrence: US)
  Receive Date: 20130221
  Receipt Date: 20130221
  Transmission Date: 20140127
  Serious: Yes (Other)
  Sender: FDA-Public Use
  Company Number: PHEH2012US015835

PATIENT
  Age: 54 Year
  Sex: Female

DRUGS (11)
  1. GILENYA [Suspect]
     Indication: MULTIPLE SCLEROSIS
     Dosage: 0.5 MG, QD
     Route: 048
     Dates: start: 20120810
  2. METAXALONE [Suspect]
  3. BACLOFEN [Concomitant]
  4. METFORMIN [Concomitant]
  5. CYMBALTA [Concomitant]
  6. CLONAZEPAM [Concomitant]
  7. CRESTOR [Concomitant]
  8. BENICAR [Concomitant]
  9. AMBIEN [Concomitant]
  10. ZYRTEC [Concomitant]
  11. SYMBICORT [Concomitant]

REACTIONS (11)
  - Bronchitis chronic [Unknown]
  - Blepharospasm [Not Recovered/Not Resolved]
  - Stress [Unknown]
  - Balance disorder [Unknown]
  - Tremor [Not Recovered/Not Resolved]
  - Fatigue [Not Recovered/Not Resolved]
  - Blood pressure decreased [Recovering/Resolving]
  - Neuralgia [Unknown]
  - Migraine [Unknown]
  - Sinusitis [Unknown]
  - Multiple sclerosis relapse [Unknown]
